FAERS Safety Report 8086632 (Version 2)
Quarter: 2014Q2

REPORT INFORMATION
  Report Type: Spontaneous
  Country: US (occurrence: US)
  Receive Date: 20110811
  Receipt Date: 20140618
  Transmission Date: 20141212
  Serious: Yes (Death, Hospitalization)
  Sender: FDA-Public Use
  Company Number: US-GLAXOSMITHKLINE-A0887655A

PATIENT
  Sex: Male

DRUGS (2)
  1. AVANDIA [Suspect]
     Indication: DIABETES MELLITUS
     Dosage: 4MG PER DAY
     Route: 048
     Dates: start: 200009, end: 200703
  2. ROSIGLITAZONE MALEATE [Suspect]
     Indication: DIABETES MELLITUS
     Dosage: 4MG TWICE PER DAY
     Route: 048
     Dates: start: 20000901, end: 20070302

REACTIONS (6)
  - Myocardial infarction [Fatal]
  - Sudden cardiac death [Fatal]
  - Cardiomyopathy [Unknown]
  - Atrial fibrillation [Unknown]
  - Ventricular extrasystoles [Unknown]
  - Coronary artery disease [Unknown]
